FAERS Safety Report 14570087 (Version 1)
Quarter: 2018Q1

REPORT INFORMATION
  Report Type: Spontaneous
  Country: US (occurrence: US)
  Receive Date: 20180225
  Receipt Date: 20180225
  Transmission Date: 20180509
  Serious: Yes (Other)
  Sender: FDA-Public Use
  Company Number: US-009507513-1802USA010993

PATIENT
  Sex: Female

DRUGS (1)
  1. KEYTRUDA [Suspect]
     Active Substance: PEMBROLIZUMAB
     Indication: MALIGNANT MELANOMA
     Dosage: 200MG EVERY 21 DAYS, ROUTE: INFUSION

REACTIONS (2)
  - Nervous system disorder [Not Recovered/Not Resolved]
  - Encephalitis [Not Recovered/Not Resolved]
